FAERS Safety Report 7940076-8 (Version None)
Quarter: 2011Q4

REPORT INFORMATION
  Report Type: 
  Country: None (occurrence: None)
  Receive Date: 20111125
  Receipt Date: 20111117
  Transmission Date: 20120403
  Serious: Yes (Hospitalization)
  Sender: FDA-Public Use
  Company Number: PHEH2011US009632

PATIENT
  Sex: Male

DRUGS (1)
  1. DIOVAN [Suspect]

REACTIONS (1)
  - FLUID RETENTION [None]
